FAERS Safety Report 15099857 (Version 1)
Quarter: 2018Q3

REPORT INFORMATION
  Report Type: Spontaneous
  Country: US (occurrence: US)
  Receive Date: 20180703
  Receipt Date: 20180703
  Transmission Date: 20181010
  Serious: Yes (Hospitalization, Other)
  Sender: FDA-Public Use
  Company Number: US-UNICHEM PHARMACEUTICALS (USA) INC-UCM201806-000141

PATIENT
  Age: 72 Year
  Sex: Male

DRUGS (3)
  1. MEMANTINE. [Suspect]
     Active Substance: MEMANTINE
  2. QUETIAPINE. [Concomitant]
     Active Substance: QUETIAPINE
  3. QUETIAPINE. [Concomitant]
     Active Substance: QUETIAPINE

REACTIONS (2)
  - Delirium [Recovered/Resolved]
  - Psychomotor hyperactivity [Recovered/Resolved]
